FAERS Safety Report 8565554-2 (Version None)
Quarter: 2012Q3

REPORT INFORMATION
  Report Type: 
  Country: None (occurrence: None)
  Receive Date: 20120724
  Receipt Date: 20120710
  Transmission Date: 20120928
  Serious: Yes (Hospitalization)
  Sender: FDA-Public Use
  Company Number: 2012P1040636

PATIENT
  Age: 50 Year
  Sex: Female

DRUGS (5)
  1. CARBOPLATIN [Concomitant]
  2. RESTAMIN [Concomitant]
  3. PACLITAXEL [Concomitant]
  4. RANITIDINE HCL [Suspect]
     Indication: PREMEDICATION
     Dosage: 50 MG;QD;IV
     Route: 042
     Dates: start: 20120514, end: 20120514
  5. EMEND [Concomitant]

REACTIONS (8)
  - TREMOR [None]
  - PARKINSONISM [None]
  - HYPOAESTHESIA [None]
  - INJECTION SITE RASH [None]
  - INJECTION SITE VESICLES [None]
  - RASH [None]
  - ILEUS PARALYTIC [None]
  - DYSARTHRIA [None]
